FAERS Safety Report 4405164-1 (Version None)
Quarter: 2004Q3

REPORT INFORMATION
  Report Type: 
  Country: None (occurrence: None)
  Receive Date: 20040723
  Receipt Date: 20040521
  Transmission Date: 20050211
  Serious: No
  Sender: FDA-Public Use
  Company Number: US-BRISTOL-MYERS SQUIBB COMPANY-12592531

PATIENT
  Age: 9 Year
  Sex: Male

DRUGS (1)
  1. MAXIPIME [Suspect]
     Indication: INFECTION
     Route: 042
     Dates: start: 20040518, end: 20040519

REACTIONS (4)
  - AGITATION [None]
  - HEART RATE INCREASED [None]
  - RASH PRURITIC [None]
  - VOMITING [None]
